FAERS Safety Report 15788684 (Version 2)
Quarter: 2019Q1

REPORT INFORMATION
  Report Type: Other
  Country: PT (occurrence: PT)
  Receive Date: 20190104
  Receipt Date: 20190121
  Transmission Date: 20190417
  Serious: Yes (Life-Threatening, Hospitalization)
  Sender: FDA-Public Use
  Company Number: PT-IPCA LABORATORIES LIMITED-IPC-2018-PT-002535

PATIENT

DRUGS (6)
  1. METFORMIN [Suspect]
     Active Substance: METFORMIN HYDROCHLORIDE
     Indication: DIABETES MELLITUS
     Dosage: 1000 MG, QD
     Route: 048
     Dates: end: 20181122
  2. ZOMARIST [Suspect]
     Active Substance: VILDAGLIPTIN
     Indication: DIABETES MELLITUS
     Dosage: 1 DF, BID
     Route: 048
  3. SIMVASTATIN. [Concomitant]
     Active Substance: SIMVASTATIN
     Indication: PRODUCT USED FOR UNKNOWN INDICATION
     Dosage: 1 DF, QD
     Route: 065
  4. FLOXEDOL [Concomitant]
     Indication: CORNEAL TRANSPLANT
     Dosage: UNK
     Route: 047
     Dates: start: 201811
  5. DEXAVAL [Concomitant]
     Indication: CORNEAL TRANSPLANT
     Dosage: UNK
     Route: 065
     Dates: start: 201811
  6. OLMESARTAN MEDOXOMIL + HYDROCHLOROTHIAZIDE [Concomitant]
     Indication: PRODUCT USED FOR UNKNOWN INDICATION
     Dosage: 1 DF, QD
     Route: 065

REACTIONS (9)
  - Acetonaemia [Recovering/Resolving]
  - Blood phosphorus increased [Recovering/Resolving]
  - Hyperlactacidaemia [Recovering/Resolving]
  - Blood urea increased [Recovering/Resolving]
  - Blood creatinine increased [Recovering/Resolving]
  - Abdominal pain [Recovering/Resolving]
  - Urine output decreased [Recovering/Resolving]
  - Blood potassium increased [Recovering/Resolving]
  - Vomiting [Recovering/Resolving]

NARRATIVE: CASE EVENT DATE: 20181121
